FAERS Safety Report 8172329-5 (Version None)
Quarter: 2012Q1

REPORT INFORMATION
  Report Type: 
  Country: None (occurrence: None)
  Receive Date: 20120229
  Receipt Date: 20120222
  Transmission Date: 20120608
  Serious: No
  Sender: FDA-Public Use
  Company Number: US-BIOGENIDEC-2012BI006821

PATIENT
  Age: 18 Year
  Sex: Male

DRUGS (1)
  1. TYSABRI [Suspect]
     Indication: CROHN'S DISEASE
     Route: 042
     Dates: start: 20110318

REACTIONS (4)
  - DECREASED APPETITE [None]
  - ASTHENIA [None]
  - WEIGHT DECREASED [None]
  - PYREXIA [None]
